FAERS Safety Report 8832874 (Version 1)
Quarter: 2012Q4

REPORT INFORMATION
  Report Type: Spontaneous
  Country: US (occurrence: None)
  Receive Date: 20121009
  Receipt Date: 20121009
  Transmission Date: 20130627
  Serious: Yes (Disabling, Other)
  Sender: FDA-Public Use
  Company Number: None

PATIENT
  Age: 19 Year
  Sex: Male
  Weight: 84.37 kg

DRUGS (2)
  1. VOLTAREN [Suspect]
     Indication: EYE INFECTION
     Route: 047
     Dates: start: 19920701, end: 20121008
  2. DICLOFENAC [Suspect]
     Indication: EYE INFECTION
     Dosage: one drop 4xdaily ophthalmic
     Route: 047
     Dates: start: 19920701, end: 20121008

REACTIONS (1)
  - Cataract [None]
